FAERS Safety Report 22924199 (Version 2)
Quarter: 2023Q4

REPORT INFORMATION
  Report Type: Report from Study
  Country: AU (occurrence: None)
  Receive Date: 20230908
  Receipt Date: 20231129
  Transmission Date: 20240110
  Serious: Yes (Death, Hospitalization)
  Sender: FDA-Public Use
  Company Number: AU-ROCHE-3132820

PATIENT
  Age: 71 Year
  Sex: Male
  Weight: 66.7 kg

DRUGS (6)
  1. ATEZOLIZUMAB [Suspect]
     Active Substance: ATEZOLIZUMAB
     Indication: Metastatic renal cell carcinoma
     Dosage: ON 23/JUN/2022, PATIENT HAD MOST RECENT DOSE OF ATEZOLIZUMAB 1200 MG PRIOR TO AE/SAE
     Route: 041
     Dates: start: 20210923
  2. CABOZANTINIB [Suspect]
     Active Substance: CABOZANTINIB
     Indication: Metastatic renal cell carcinoma
     Route: 048
     Dates: start: 20210923
  3. CABOZANTINIB [Suspect]
     Active Substance: CABOZANTINIB
     Dosage: ON 23/JUN/2022, PATIENT HAD MOST RECENT DOSE OF CABOZANTINIB 20 MG PRIOR TO AE AND 1200 MG PRIOR TO
     Route: 048
  4. APIXABAN [Concomitant]
     Active Substance: APIXABAN
     Route: 048
     Dates: start: 20210612
  5. METAMUCIL [Concomitant]
     Active Substance: PLANTAGO SEED
     Indication: Constipation
     Dosage: MEDICATION DOSE 1 TBSP
     Route: 048
     Dates: start: 20211004
  6. COLOXYL WITH SENNA [Concomitant]
     Indication: Constipation
     Dosage: MEDICATION DOSE 2 TABLET
     Route: 048
     Dates: start: 20211002

REACTIONS (2)
  - Immune-mediated enterocolitis [Fatal]
  - Acute kidney injury [Recovered/Resolved]

NARRATIVE: CASE EVENT DATE: 20220629
